FAERS Safety Report 7425861-3 (Version None)
Quarter: 2011Q2

REPORT INFORMATION
  Report Type: 
  Country: None (occurrence: None)
  Receive Date: 20110418
  Receipt Date: 20110418
  Transmission Date: 20111010
  Serious: Yes (Other)
  Sender: FDA-Public Use
  Company Number: None

PATIENT
  Age: 29 Year
  Sex: Female
  Weight: 64.4108 kg

DRUGS (2)
  1. EMEND [Suspect]
     Indication: NAUSEA
     Dosage: 150 MG IV
     Route: 042
     Dates: start: 20110331, end: 20110331
  2. EMEND [Suspect]
     Indication: VOMITING
     Dosage: 150 MG IV
     Route: 042
     Dates: start: 20110331, end: 20110331

REACTIONS (2)
  - INFUSION SITE IRRITATION [None]
  - INFUSION SITE PAIN [None]
